FAERS Safety Report 10210963 (Version 1)
Quarter: 2014Q2

REPORT INFORMATION
  Report Type: Spontaneous
  Country: US (occurrence: None)
  Receive Date: 20140530
  Receipt Date: 20140530
  Transmission Date: 20141212
  Serious: No
  Sender: FDA-Public Use
  Company Number: None

PATIENT
  Age: 45 Year
  Sex: Female
  Weight: 63.5 kg

DRUGS (2)
  1. SUMATRIPTAN 100 MG [Suspect]
     Indication: MIGRAINE
     Dosage: 9     PRN  BY MOUTH
     Route: 048
     Dates: start: 20140402
  2. METHIMAZOLE [Concomitant]

REACTIONS (2)
  - Drug ineffective [None]
  - Product substitution issue [None]
